FAERS Safety Report 13364236 (Version 1)
Quarter: 2017Q1

REPORT INFORMATION
  Report Type: Spontaneous
  Country: FR (occurrence: FR)
  Receive Date: 20170323
  Receipt Date: 20170323
  Transmission Date: 20170429
  Serious: Yes (Other)
  Sender: FDA-Public Use
  Company Number: FR-PFIZER INC-2017121659

PATIENT
  Age: 4 Month
  Sex: Male

DRUGS (4)
  1. HYDROCORTISONE. [Concomitant]
     Active Substance: HYDROCORTISONE
     Indication: BLOOD CORTICOTROPHIN DECREASED
  2. EPANUTIN [Suspect]
     Active Substance: PHENYTOIN SODIUM
     Indication: CONVULSION NEONATAL
     Dosage: UNK
     Route: 048
     Dates: start: 20160324, end: 20160906
  3. SABRIL [Concomitant]
     Active Substance: VIGABATRIN
     Indication: CONVULSION NEONATAL
     Dosage: UNK
     Route: 048
     Dates: start: 20160308
  4. BIOTIN [Concomitant]
     Active Substance: BIOTIN

REACTIONS (1)
  - Neutropenia [Recovered/Resolved]

NARRATIVE: CASE EVENT DATE: 20160706
